FAERS Safety Report 6681137-3 (Version None)
Quarter: 2010Q2

REPORT INFORMATION
  Report Type: 
  Country: None (occurrence: None)
  Receive Date: 20100414
  Receipt Date: 20100405
  Transmission Date: 20101027
  Serious: Yes (Hospitalization)
  Sender: FDA-Public Use
  Company Number: US-ROCHE-696321

PATIENT
  Age: 67 Year
  Sex: Male
  Weight: 84 kg

DRUGS (7)
  1. BEVACIZUMAB [Suspect]
     Indication: MULTIPLE MYELOMA
     Dosage: OVER 90 MINUTE ON DAY1 AND DAY 15, TOTAL DOSE ADMINISTERED AS 1660 MG
     Route: 042
     Dates: start: 20080811, end: 20090309
  2. LENALIDOMIDE [Suspect]
     Indication: MULTIPLE MYELOMA
     Dosage: QD ON DAY 1-21, TOTAL DOSE ADMINISTERED AS 475 MG
     Route: 048
     Dates: start: 20080811, end: 20090313
  3. DEXAMETASONE [Suspect]
     Indication: MULTIPLE MYELOMA
     Dosage: ON DAY 1,8,15 AND 22; TOTAL DOSE ADMINISTERED 80 MG
     Route: 048
     Dates: start: 20080811, end: 20090302
  4. METOPROLOL TARTRATE [Concomitant]
  5. OS-CAL [Concomitant]
  6. ASPIRIN [Concomitant]
  7. NORVASC [Concomitant]

REACTIONS (6)
  - ARRHYTHMIA [None]
  - DIASTOLIC DYSFUNCTION [None]
  - LUNG INFILTRATION [None]
  - PNEUMONITIS [None]
  - RENAL FAILURE [None]
  - TROPONIN T [None]
